FAERS Safety Report 4480545-9 (Version None)
Quarter: 2004Q4

REPORT INFORMATION
  Report Type: 
  Country: None (occurrence: None)
  Receive Date: 20041019
  Receipt Date: 20041008
  Transmission Date: 20050328
  Serious: Yes (Death)
  Sender: FDA-Public Use
  Company Number: 2004AC00451

PATIENT
  Age: 56 Year
  Sex: Female

DRUGS (1)
  1. SEROQUEL [Suspect]

REACTIONS (5)
  - COMPLETED SUICIDE [None]
  - OVERDOSE [None]
  - PNEUMONIA VIRAL [None]
  - PNEUMONITIS [None]
  - SELF-MEDICATION [None]
